FAERS Safety Report 4299110-1 (Version None)
Quarter: 2004Q1

REPORT INFORMATION
  Report Type: 
  Country: None (occurrence: None)
  Receive Date: 20040217
  Receipt Date: 20040205
  Transmission Date: 20041129
  Serious: Yes (Disabling)
  Sender: FDA-Public Use
  Company Number: K200400047

PATIENT
  Age: 56 Year
  Sex: Female

DRUGS (9)
  1. ALTACE [Suspect]
     Indication: HYPERTENSION
     Dosage: 2.5 MG, QD, ORAL
     Route: 048
     Dates: start: 20030505, end: 20030605
  2. VAGIFEM [Concomitant]
  3. HYDREX (HYDROCHLOROTHIAZIDE) [Concomitant]
  4. EMCONCOR (BISOPROLOL) [Concomitant]
  5. ORMOX [Concomitant]
  6. PRIMASPAN (ACETYLSALICYLIC ACID) [Concomitant]
  7. NORFLOXACIN [Concomitant]
  8. LIPITOR [Concomitant]
  9. LOSEC (OMEPRAZOLE) [Concomitant]

REACTIONS (3)
  - DERMATITIS EXFOLIATIVE [None]
  - EXANTHEM [None]
  - ONYCHOMADESIS [None]
